FAERS Safety Report 6960039-9 (Version None)
Quarter: 2010Q3

REPORT INFORMATION
  Report Type: 
  Country: None (occurrence: None)
  Receive Date: 20100901
  Receipt Date: 20100817
  Transmission Date: 20110219
  Serious: Yes (Other)
  Sender: FDA-Public Use
  Company Number: PHHY2010NL54307

PATIENT
  Sex: Male

DRUGS (11)
  1. SANDOSTATIN LAR [Suspect]
     Indication: CARCINOID SYNDROME
  2. SANDOSTATIN [Suspect]
     Indication: CARCINOID SYNDROME
     Dosage: UNK
  3. METFORMIN [Suspect]
     Dosage: 1850MG DAILY
  4. BISOPROLOL FUMARATE [Concomitant]
     Dosage: UNK
  5. COZAAR [Concomitant]
     Dosage: UNK
  6. LERDIP [Concomitant]
     Dosage: UNK
  7. ACENOCOUMAROL [Concomitant]
     Dosage: UNK
  8. FUROSEMIDE [Concomitant]
     Dosage: UNK
  9. SIMVASTATIN [Concomitant]
     Dosage: UNK
  10. TAMSULOSIN HCL [Concomitant]
     Dosage: UNK
  11. SERETIDE [Concomitant]
     Dosage: UNK

REACTIONS (7)
  - BLOOD GLUCOSE INCREASED [None]
  - DIARRHOEA [None]
  - DYSPNOEA [None]
  - FLATULENCE [None]
  - HEART RATE IRREGULAR [None]
  - RASH [None]
  - VITAMIN B12 DECREASED [None]
